FAERS Safety Report 7540685-4 (Version None)
Quarter: 2011Q2

REPORT INFORMATION
  Report Type: 
  Country: None (occurrence: None)
  Receive Date: 20110610
  Receipt Date: 20110601
  Transmission Date: 20111010
  Serious: Yes (Life-Threatening, Other)
  Sender: FDA-Public Use
  Company Number: FR-GENZYME-CLOF-1001634

PATIENT
  Sex: Female
  Weight: 63 kg

DRUGS (8)
  1. ERWINASE [Suspect]
     Indication: NON-HODGKIN'S LYMPHOMA
     Dosage: 33600 UNK, QD
     Route: 042
     Dates: start: 20110325, end: 20110325
  2. EVOLTRA [Suspect]
     Indication: ACUTE LYMPHOCYTIC LEUKAEMIA
     Dosage: 54 UNK, QD
     Route: 042
     Dates: start: 20110319, end: 20110323
  3. MITOXANTRONE [Suspect]
     Indication: ACUTE LYMPHOCYTIC LEUKAEMIA
     Dosage: 13.40 UNK, QD
     Route: 042
     Dates: start: 20110321, end: 20110322
  4. DEXAMETHASONE [Suspect]
     Indication: ACUTE LYMPHOCYTIC LEUKAEMIA
     Dosage: 34 MG, QD
     Route: 042
     Dates: start: 20110317, end: 20110323
  5. ETOPOSIDE [Suspect]
     Indication: ACUTE LYMPHOCYTIC LEUKAEMIA
     Dosage: 252 UNK, QD
     Route: 042
     Dates: start: 20110321, end: 20110323
  6. HYDROCORTISONE [Suspect]
     Indication: ACUTE LYMPHOCYTIC LEUKAEMIA
     Dosage: 15 UNK, QD
     Route: 037
     Dates: start: 20110325, end: 20110325
  7. CYTARABINE [Suspect]
     Indication: ACUTE LYMPHOCYTIC LEUKAEMIA
     Dosage: 30 UNK, QD
     Route: 037
     Dates: start: 20110325, end: 20110325
  8. METHOTREXATE [Suspect]
     Indication: ACUTE LYMPHOCYTIC LEUKAEMIA
     Dosage: 12 UNK, QD
     Route: 037
     Dates: start: 20110325, end: 20110325

REACTIONS (3)
  - BRONCHOPULMONARY ASPERGILLOSIS [None]
  - HYPOKALAEMIA [None]
  - SEPSIS [None]
